FAERS Safety Report 5600115-6 (Version None)
Quarter: 2008Q1

REPORT INFORMATION
  Report Type: 
  Country: None (occurrence: None)
  Receive Date: 20080123
  Receipt Date: 20080118
  Transmission Date: 20080703
  Serious: Yes (Hospitalization)
  Sender: FDA-Public Use
  Company Number: B0500200A

PATIENT
  Age: 70 Year
  Sex: Female
  Weight: 55 kg

DRUGS (4)
  1. VALTREX [Suspect]
     Indication: HERPES ZOSTER
     Dosage: 1000MG THREE TIMES PER DAY
     Route: 048
     Dates: start: 20071205
  2. RANTUDIL [Concomitant]
     Indication: HERPES ZOSTER
     Route: 048
     Dates: start: 20071205, end: 20071206
  3. RANTUDIL [Concomitant]
     Route: 048
     Dates: start: 20071207
  4. MUCOSTA [Concomitant]
     Route: 048
     Dates: start: 20071205

REACTIONS (10)
  - BEDRIDDEN [None]
  - CHEST PAIN [None]
  - DIZZINESS [None]
  - FALL [None]
  - GAIT DISTURBANCE [None]
  - HEADACHE [None]
  - RENAL DISORDER [None]
  - RENAL FAILURE [None]
  - VISUAL ACUITY REDUCED [None]
  - VISUAL DISTURBANCE [None]
